FAERS Safety Report 9002104 (Version 1)
Quarter: 2013Q1

REPORT INFORMATION
  Report Type: Spontaneous
  Country: US (occurrence: None)
  Receive Date: 20130102
  Receipt Date: 20130102
  Transmission Date: 20140127
  Serious: Yes (Hospitalization)
  Sender: FDA-Public Use
  Company Number: None

PATIENT
  Age: 59 Year
  Sex: Male
  Weight: 132.1 kg

DRUGS (1)
  1. WARFARIN [Suspect]
     Route: 048
     Dates: end: 20121224

REACTIONS (1)
  - Gastric haemorrhage [None]
